FAERS Safety Report 6892211-0 (Version None)
Quarter: 2010Q3

REPORT INFORMATION
  Report Type: 
  Country: None (occurrence: None)
  Receive Date: 20100731
  Receipt Date: 20080225
  Transmission Date: 20110219
  Serious: No
  Sender: FDA-Public Use
  Company Number: US-PFIZER INC-2008005314

PATIENT
  Sex: Female
  Weight: 59.65 kg

DRUGS (6)
  1. NORVASC [Suspect]
     Indication: HYPERTENSION
     Route: 048
     Dates: start: 20060510
  2. NAVANE [Suspect]
     Dates: start: 20071201
  3. ENALAPRIL [Concomitant]
  4. METFORMIN HCL [Concomitant]
  5. ZYRTEC [Concomitant]
  6. LIPITOR [Concomitant]

REACTIONS (4)
  - BLOOD PRESSURE INADEQUATELY CONTROLLED [None]
  - MALAISE [None]
  - MUSCULAR WEAKNESS [None]
  - WRONG DRUG ADMINISTERED [None]
